APPROVED DRUG PRODUCT: LEVALBUTEROL HYDROCHLORIDE
Active Ingredient: LEVALBUTEROL HYDROCHLORIDE
Strength: EQ 0.0103% BASE
Dosage Form/Route: SOLUTION;INHALATION
Application: A077800 | Product #001
Applicant: PHARMOBEDIENT CONSULTING LLC
Approved: Mar 15, 2013 | RLD: No | RS: No | Type: DISCN